FAERS Safety Report 16024231 (Version 1)
Quarter: 2019Q1

REPORT INFORMATION
  Report Type: Spontaneous
  Country: FR (occurrence: FR)
  Receive Date: 20190301
  Receipt Date: 20190301
  Transmission Date: 20190418
  Serious: Yes (Other)
  Sender: FDA-Public Use
  Company Number: FR-BAUSCH-BL-2019-006158

PATIENT
  Age: 16 Year
  Sex: Male

DRUGS (3)
  1. SPIRAMYCINE [Suspect]
     Active Substance: SPIRAMYCIN
     Indication: TOOTH EXTRACTION
     Route: 048
     Dates: start: 20181210, end: 20181219
  2. METRONIDAZOLE. [Suspect]
     Active Substance: METRONIDAZOLE
     Indication: TOOTH EXTRACTION
     Route: 065
     Dates: start: 20181210, end: 20181219
  3. REMICADE [Suspect]
     Active Substance: INFLIXIMAB
     Indication: VASCULITIS
     Dosage: 28 TH CURE
     Route: 065

REACTIONS (1)
  - Hepatocellular injury [Recovered/Resolved]

NARRATIVE: CASE EVENT DATE: 20181219
